FAERS Safety Report 14243912 (Version 2)
Quarter: 2018Q1

REPORT INFORMATION
  Report Type: Spontaneous
  Country: JP (occurrence: JP)
  Receive Date: 20171201
  Receipt Date: 20180119
  Transmission Date: 20180508
  Serious: Yes (Other)
  Sender: FDA-Public Use
  Company Number: JP-GLAXOSMITHKLINE-JP2017JPN180895

PATIENT
  Age: 79 Year
  Sex: Female

DRUGS (1)
  1. VALTREX [Suspect]
     Active Substance: VALACYCLOVIR HYDROCHLORIDE
     Indication: HERPES ZOSTER
     Dosage: 1000 MG, TID
     Route: 048
     Dates: start: 20170607

REACTIONS (8)
  - Tremor [Recovered/Resolved]
  - Metabolic acidosis [Recovered/Resolved]
  - Decreased appetite [Recovered/Resolved]
  - Renal impairment [Recovered/Resolved]
  - Toxic encephalopathy [Recovered/Resolved]
  - Nausea [Recovered/Resolved]
  - Urine output decreased [Recovered/Resolved]
  - Altered state of consciousness [Recovered/Resolved]
